FAERS Safety Report 8103665-6 (Version None)
Quarter: 2012Q1

REPORT INFORMATION
  Report Type: 
  Country: None (occurrence: None)
  Receive Date: 20120201
  Receipt Date: 20120118
  Transmission Date: 20120608
  Serious: Yes (Hospitalization)
  Sender: FDA-Public Use
  Company Number: CH-ROCHE-1033787

PATIENT
  Age: 82 Year
  Sex: Female

DRUGS (7)
  1. LUCENTIS [Suspect]
     Route: 031
     Dates: end: 20111017
  2. DIGOXIN [Concomitant]
     Dates: start: 20111028
  3. SINTROM [Suspect]
     Indication: ATRIAL FIBRILLATION
     Route: 048
     Dates: start: 20111028
  4. BISOPROLOL FUMARATE [Concomitant]
     Dates: start: 20111028
  5. LUCENTIS [Suspect]
     Indication: AGE-RELATED MACULAR DEGENERATION
     Route: 031
     Dates: start: 20090101
  6. SIMCORA [Concomitant]
     Dates: start: 20111028
  7. ASPIRIN [Concomitant]
     Dates: start: 20111028, end: 20111101

REACTIONS (5)
  - DILATATION ATRIAL [None]
  - DRUG INEFFECTIVE [None]
  - ARTERIOSCLEROSIS [None]
  - CEREBELLAR ISCHAEMIA [None]
  - CEREBRAL INFARCTION [None]
